FAERS Safety Report 16446137 (Version 1)
Quarter: 2019Q2

REPORT INFORMATION
  Report Type: Report from Study
  Country: US (occurrence: US)
  Receive Date: 20190618
  Receipt Date: 20190618
  Transmission Date: 20190711
  Serious: Yes (Hospitalization)
  Sender: FDA-Public Use
  Company Number: US-EMD SERONO-E2B_80054392

PATIENT
  Age: 56 Year
  Sex: Female
  Weight: 70 kg

DRUGS (7)
  1. AVELUMAB [Suspect]
     Active Substance: AVELUMAB
     Indication: NON-SMALL CELL LUNG CANCER
     Dosage: 10 MG/KG, Q2 WEEKS
     Route: 042
     Dates: start: 20161110
  2. CALCIUM [Concomitant]
     Active Substance: CALCIUM
     Indication: SUPPLEMENTATION THERAPY
     Dosage: 1X/DAY
     Route: 048
  3. AVELUMAB [Suspect]
     Active Substance: AVELUMAB
     Dosage: UNK
  4. PF-05082566 [Suspect]
     Active Substance: UTOMILUMAB
     Indication: NON-SMALL CELL LUNG CANCER
     Dosage: 100 MG, Q MONTH
     Route: 042
     Dates: start: 20161110
  5. AVELUMAB [Suspect]
     Active Substance: AVELUMAB
     Dosage: UNK
  6. AVELUMAB [Suspect]
     Active Substance: AVELUMAB
     Dosage: UNK
  7. VITAMIN D3 [Concomitant]
     Active Substance: CHOLECALCIFEROL
     Indication: SUPPLEMENTATION THERAPY
     Dosage: 1X/DAY
     Route: 048

REACTIONS (1)
  - Hypoxia [Recovered/Resolved]

NARRATIVE: CASE EVENT DATE: 20161110
